FAERS Safety Report 9285834 (Version 1)
Quarter: 2013Q2

REPORT INFORMATION
  Report Type: Spontaneous
  Country: US (occurrence: US)
  Receive Date: 20130513
  Receipt Date: 20130513
  Transmission Date: 20140414
  Serious: No
  Sender: FDA-Public Use
  Company Number: US-009507513-1305USA006739

PATIENT
  Sex: Female
  Weight: 61.22 kg

DRUGS (1)
  1. IMPLANON [Suspect]
     Indication: CONTRACEPTION
     Dosage: 1 ROD UPTO 3 YEARS
     Route: 058
     Dates: start: 20100817

REACTIONS (3)
  - Metrorrhagia [Not Recovered/Not Resolved]
  - Implant site pain [Not Recovered/Not Resolved]
  - Limb discomfort [Not Recovered/Not Resolved]
